FAERS Safety Report 11171451 (Version 1)
Quarter: 2015Q2

REPORT INFORMATION
  Report Type: Spontaneous
  Country: US (occurrence: US)
  Receive Date: 20150608
  Receipt Date: 20150608
  Transmission Date: 20150821
  Serious: No
  Sender: FDA-Public Use
  Company Number: US-PFIZER INC-2015187803

PATIENT
  Age: 70 Year
  Sex: Female
  Weight: 73 kg

DRUGS (1)
  1. CELECOXIB. [Suspect]
     Active Substance: CELECOXIB
     Dosage: 200 MG, DAILY

REACTIONS (1)
  - Drug ineffective [Not Recovered/Not Resolved]
